FAERS Safety Report 16787824 (Version 1)
Quarter: 2019Q3

REPORT INFORMATION
  Report Type: Spontaneous
  Country: US (occurrence: US)
  Receive Date: 20190909
  Receipt Date: 20190909
  Transmission Date: 20191005
  Serious: No
  Sender: FDA-Public Use
  Company Number: US-SUNOVION-2019SUN003669

PATIENT
  Sex: Female
  Weight: 49.89 kg

DRUGS (2)
  1. BUDESONIDE/ALBUTEROL [Concomitant]
  2. LONHALA MAGNAIR [Suspect]
     Active Substance: GLYCOPYRROLATE
     Indication: CHRONIC OBSTRUCTIVE PULMONARY DISEASE
     Dosage: 25 ?G, BID, AM AND 6PM
     Route: 055
     Dates: start: 201908

REACTIONS (1)
  - Cough [Not Recovered/Not Resolved]
